FAERS Safety Report 6901038-2 (Version None)
Quarter: 2010Q3

REPORT INFORMATION
  Report Type: 
  Country: None (occurrence: None)
  Receive Date: 20100803
  Receipt Date: 20100726
  Transmission Date: 20110219
  Serious: Yes (Other)
  Sender: FDA-Public Use
  Company Number: PHHO2010US11464

PATIENT
  Sex: Male
  Weight: 91 kg

DRUGS (5)
  1. ZOMETA [Suspect]
     Dosage: UNK
  2. VELCADE [Suspect]
     Indication: MULTIPLE MYELOMA
     Dosage: 1.3MG/M2
     Route: 042
     Dates: start: 20100111, end: 20100617
  3. REVLIMID [Suspect]
     Indication: MULTIPLE MYELOMA
     Dosage: 25MG, CYCLIC
     Route: 048
     Dates: start: 20100111, end: 20100716
  4. DEXAMETHAZONE-PIX [Suspect]
     Indication: MULTIPLE MYELOMA
     Dosage: 20MG CYCLIC
     Route: 048
     Dates: start: 20100111
  5. ASPIRIN [Concomitant]

REACTIONS (2)
  - BONE DISORDER [None]
  - OSTEONECROSIS OF JAW [None]
